FAERS Safety Report 4383778-5 (Version None)
Quarter: 2004Q2

REPORT INFORMATION
  Report Type: 
  Country: None (occurrence: None)
  Receive Date: 20040623
  Receipt Date: 20040514
  Transmission Date: 20050107
  Serious: Yes (Death, Life-Threatening, Disabling, Other)
  Sender: FDA-Public Use
  Company Number: GB-MERCK-0405GBR00121

PATIENT
  Age: 12 Year
  Sex: Male
  Weight: 76 kg

DRUGS (3)
  1. HYDROCORTONE [Suspect]
     Indication: HYPOPITUITARISM
     Route: 048
     Dates: start: 19910927, end: 20040501
  2. LEVOTHYROXINE SODIUM [Concomitant]
     Indication: BLOOD THYROID STIMULATING HORMONE DECREASED
     Route: 065
     Dates: start: 19910927, end: 20040501
  3. SOMATROPIN [Concomitant]
     Indication: GROWTH HORMONE DEFICIENCY
     Route: 065
     Dates: start: 19920101, end: 20040501

REACTIONS (1)
  - GASTROINTESTINAL HAEMORRHAGE [None]
